FAERS Safety Report 4686259-4 (Version None)
Quarter: 2005Q2

REPORT INFORMATION
  Report Type: 
  Country: None (occurrence: None)
  Receive Date: 20050609
  Receipt Date: 20050523
  Transmission Date: 20051028
  Serious: Yes (Hospitalization)
  Sender: FDA-Public Use
  Company Number: JP-GLAXOSMITHKLINE-B0382509A

PATIENT
  Age: 78 Year
  Sex: Female
  Weight: 53 kg

DRUGS (6)
  1. VALTREX [Suspect]
     Indication: HERPES ZOSTER
     Dosage: 1000MG THREE TIMES PER DAY
     Route: 048
     Dates: start: 20050518, end: 20050520
  2. P MAGEN [Concomitant]
     Route: 048
  3. SELBEX [Concomitant]
     Route: 048
  4. CALONAL [Concomitant]
     Route: 048
  5. SILECE [Concomitant]
     Route: 048
  6. CERCINE [Concomitant]
     Route: 048

REACTIONS (4)
  - ASTHENIA [None]
  - DIARRHOEA [None]
  - DIFFICULTY IN WALKING [None]
  - MUSCULAR WEAKNESS [None]
